FAERS Safety Report 6293829-9 (Version None)
Quarter: 2009Q3

REPORT INFORMATION
  Report Type: 
  Country: None (occurrence: None)
  Receive Date: 20090803
  Receipt Date: 20090731
  Transmission Date: 20100115
  Serious: Yes (Death)
  Sender: FDA-Public Use
  Company Number: PHHY2009GB31197

PATIENT
  Sex: Male
  Weight: 65 kg

DRUGS (8)
  1. NEORAL [Suspect]
     Indication: DERMATITIS ATOPIC
     Dosage: 100 MG, BID
     Route: 048
     Dates: start: 20000101, end: 20080101
  2. NEORAL [Suspect]
     Dosage: 200 MG, BID
     Route: 048
     Dates: start: 20080101
  3. PREDNISOLONE [Concomitant]
     Indication: ECZEMA
     Dosage: UNK
     Route: 048
     Dates: start: 19940101
  4. PREDNISOLONE [Concomitant]
     Indication: TRANSPLANT REJECTION
     Dosage: UNK
     Dates: start: 19970101
  5. PREDNISOLONE [Concomitant]
     Dosage: UNK
     Dates: start: 20080101
  6. EMOLLIENTS AND PROTECTIVES [Concomitant]
  7. STEROIDS NOS [Concomitant]
     Route: 061
  8. EYE THERAPY [Concomitant]
     Route: 061

REACTIONS (3)
  - LYMPHADENOPATHY [None]
  - NON-HODGKIN'S LYMPHOMA [None]
  - PERINEAL ABSCESS [None]
